FAERS Safety Report 6598977-1 (Version None)
Quarter: 2010Q1

REPORT INFORMATION
  Report Type: 
  Country: None (occurrence: None)
  Receive Date: 20100224
  Receipt Date: 20090506
  Transmission Date: 20100710
  Serious: No
  Sender: FDA-Public Use
  Company Number: US-BRISTOL-MYERS SQUIBB COMPANY-14615322

PATIENT
  Age: 63 Year
  Sex: Male

DRUGS (2)
  1. GLUCOPHAGE [Suspect]
  2. GLUCOTROL [Concomitant]

REACTIONS (1)
  - DIARRHOEA [None]
